FAERS Safety Report 4718836-6 (Version None)
Quarter: 2005Q3

REPORT INFORMATION
  Report Type: 
  Country: None (occurrence: None)
  Receive Date: 20050719
  Receipt Date: 20050706
  Transmission Date: 20060218
  Serious: Yes (Disabling)
  Sender: FDA-Public Use
  Company Number: 200300434

PATIENT
  Age: 32 Year
  Sex: Female
  Weight: 65 kg

DRUGS (4)
  1. BOTOX PURIFIED NEUROTOXIN COMPLEX [Suspect]
     Indication: SKIN WRINKLING
     Dosage: 33 UNITS PRN IM
     Route: 030
  2. MAGNESIUM [Concomitant]
  3. CALCIUM GLUCONATE [Concomitant]
  4. COLLAGEN [Concomitant]

REACTIONS (24)
  - ANXIETY DISORDER [None]
  - ARTHROPATHY [None]
  - ARTHROPOD BITE [None]
  - ASTHENIA [None]
  - DISLOCATION OF VERTEBRA [None]
  - DIZZINESS [None]
  - EAR PAIN [None]
  - FEELING ABNORMAL [None]
  - HEADACHE [None]
  - HYPOAESTHESIA [None]
  - INJECTION SITE HAEMORRHAGE [None]
  - INJECTION SITE PAIN [None]
  - LYMPHADENOPATHY [None]
  - MUSCLE SPASMS [None]
  - MUSCLE TWITCHING [None]
  - NASOPHARYNGITIS [None]
  - PARAESTHESIA [None]
  - PERIPHERAL SENSORY NEUROPATHY [None]
  - PHARYNGOLARYNGEAL PAIN [None]
  - REFRACTION DISORDER [None]
  - RETINAL DEPOSITS [None]
  - SENSORY DISTURBANCE [None]
  - TENDERNESS [None]
  - TREMOR [None]
